FAERS Safety Report 21823555 (Version 3)
Quarter: 2024Q1

REPORT INFORMATION
  Report Type: Spontaneous
  Country: US (occurrence: US)
  Receive Date: 20230105
  Receipt Date: 20240130
  Transmission Date: 20240409
  Serious: Yes (Hospitalization, Other)
  Sender: FDA-Public Use
  Company Number: US-PFIZER INC-PV202200134081

PATIENT
  Age: 54 Year
  Sex: Female
  Weight: 73.94 kg

DRUGS (1)
  1. ESTRING [Suspect]
     Active Substance: ESTRADIOL
     Indication: Menopause
     Dosage: UNK

REACTIONS (13)
  - Wrist fracture [Unknown]
  - Sinus operation [Unknown]
  - Stress [Unknown]
  - Therapeutic response unexpected [Unknown]
  - Weight decreased [Unknown]
  - Vomiting [Unknown]
  - Eating disorder [Unknown]
  - Insomnia [Unknown]
  - Anxiety [Unknown]
  - Polyp [Unknown]
  - Epistaxis [Unknown]
  - Migraine [Unknown]
  - Nausea [Unknown]
